FAERS Safety Report 9894670 (Version 1)
Quarter: 2014Q1

REPORT INFORMATION
  Report Type: Spontaneous
  Country: DE (occurrence: DE)
  Receive Date: 20140213
  Receipt Date: 20140213
  Transmission Date: 20141002
  Serious: Yes (Hospitalization)
  Sender: FDA-Public Use
  Company Number: DE-TEVA-462323GER

PATIENT
  Sex: Female

DRUGS (4)
  1. TIZANIDINE [Suspect]
     Indication: MULTIPLE SCLEROSIS
     Dosage: 3X4
     Route: 048
     Dates: start: 201310, end: 201401
  2. GILENYA [Suspect]
     Indication: MULTIPLE SCLEROSIS
     Route: 048
     Dates: start: 201310, end: 201401
  3. EMSELEX [Suspect]
     Indication: MULTIPLE SCLEROSIS
     Route: 048
     Dates: start: 201310, end: 201401
  4. FAMPYRA [Suspect]
     Indication: MULTIPLE SCLEROSIS
     Dosage: 2X1
     Route: 048
     Dates: start: 201310, end: 201401

REACTIONS (1)
  - Liver disorder [Not Recovered/Not Resolved]
